FAERS Safety Report 7149495-3 (Version None)
Quarter: 2010Q4

REPORT INFORMATION
  Report Type: 
  Country: None (occurrence: None)
  Receive Date: 20101209
  Receipt Date: 20101125
  Transmission Date: 20110411
  Serious: Yes (Other)
  Sender: FDA-Public Use
  Company Number: GB-GENENTECH-308797

PATIENT

DRUGS (6)
  1. RITUXIMAB [Suspect]
     Indication: IDIOPATHIC THROMBOCYTOPENIC PURPURA
     Dosage: UNK
     Route: 065
     Dates: start: 20100512, end: 20100823
  2. NPLATE [Suspect]
     Indication: IDIOPATHIC THROMBOCYTOPENIC PURPURA
     Dosage: 100 A?G, UNK
     Route: 058
     Dates: start: 20100514, end: 20100716
  3. NPLATE [Suspect]
     Dosage: 150 A?G, UNK
     Dates: start: 20100517
  4. NPLATE [Suspect]
     Dosage: 200 A?G, UNK
  5. NPLATE [Suspect]
     Dosage: 250 A?G, UNK
     Dates: start: 20100528
  6. IMMUNE GLOBULIN NOS [Concomitant]
     Indication: IDIOPATHIC THROMBOCYTOPENIC PURPURA
     Dosage: 80 MG, UNK
     Route: 042

REACTIONS (1)
  - ALVEOLITIS [None]
